FAERS Safety Report 17731308 (Version 7)
Quarter: 2021Q1

REPORT INFORMATION
  Report Type: Spontaneous
  Country: US (occurrence: US)
  Receive Date: 20200430
  Receipt Date: 20210104
  Transmission Date: 20210419
  Serious: Yes (Other)
  Sender: FDA-Public Use
  Company Number: US-AKCEA THERAPEUTICS-2020IS001014

PATIENT
  Age: 60 Year
  Sex: Male

DRUGS (4)
  1. ISSD (INTEGRATED SYRINGE SAFETY DEVICE) [Suspect]
     Active Substance: DEVICE
  2. TAFAMIDIS [Concomitant]
     Active Substance: TAFAMIDIS MEGLUMINE
  3. TEGSEDI [Suspect]
     Active Substance: INOTERSEN SODIUM
     Indication: HEREDITARY NEUROPATHIC AMYLOIDOSIS
     Route: 058
  4. LASIX [Concomitant]
     Active Substance: FUROSEMIDE

REACTIONS (14)
  - Injection site pain [Recovered/Resolved]
  - Food allergy [Not Recovered/Not Resolved]
  - Urine protein/creatinine ratio abnormal [Unknown]
  - Creatinine urine abnormal [Unknown]
  - Heart rate decreased [Unknown]
  - Protein urine present [Not Recovered/Not Resolved]
  - Pleural effusion [Not Recovered/Not Resolved]
  - Urine abnormality [Not Recovered/Not Resolved]
  - Nausea [Recovered/Resolved]
  - Glomerular filtration rate decreased [Not Recovered/Not Resolved]
  - Urinary occult blood positive [Not Recovered/Not Resolved]
  - Blood creatinine increased [Unknown]
  - Influenza like illness [Recovered/Resolved]
  - Red blood cells urine positive [Not Recovered/Not Resolved]

NARRATIVE: CASE EVENT DATE: 20191115
